FAERS Safety Report 20007072 (Version 2)
Quarter: 2021Q4

REPORT INFORMATION
  Report Type: Report from Study
  Country: CA (occurrence: CA)
  Receive Date: 20211028
  Receipt Date: 20211109
  Transmission Date: 20220303
  Serious: Yes (Hospitalization)
  Sender: FDA-Public Use
  Company Number: CA-NOVARTISPH-NVSC2021CA218309

PATIENT
  Sex: Female

DRUGS (1)
  1. GILENYA [Suspect]
     Active Substance: FINGOLIMOD HYDROCHLORIDE
     Indication: Relapsing-remitting multiple sclerosis
     Dosage: UNK
     Route: 048
     Dates: start: 20160525, end: 20211030

REACTIONS (4)
  - Multiple sclerosis relapse [Recovering/Resolving]
  - Balance disorder [Recovering/Resolving]
  - Ataxia [Unknown]
  - Cardiac discomfort [Unknown]

NARRATIVE: CASE EVENT DATE: 20210101
